FAERS Safety Report 10860738 (Version 1)
Quarter: 2015Q1

REPORT INFORMATION
  Report Type: Report from Study
  Country: US (occurrence: US)
  Receive Date: 20150224
  Receipt Date: 20150224
  Transmission Date: 20150721
  Serious: Yes (Other)
  Sender: FDA-Public Use
  Company Number: PHEH2015US003236

PATIENT
  Sex: Female
  Weight: 78.91 kg

DRUGS (26)
  1. OMEPRAZOLE. [Concomitant]
     Active Substance: OMEPRAZOLE
     Indication: PRODUCT USED FOR UNKNOWN INDICATION
     Dosage: 1 DF, BID, DELAYED RELEASE CAPSULE
     Route: 048
     Dates: start: 20140707, end: 20141110
  2. DULOXETINE [Concomitant]
     Active Substance: DULOXETINE
     Indication: PRODUCT USED FOR UNKNOWN INDICATION
     Dosage: 1 DF, BID, CPEP
     Route: 048
     Dates: start: 20140312, end: 20141017
  3. BACLOFEN. [Concomitant]
     Active Substance: BACLOFEN
     Indication: PRODUCT USED FOR UNKNOWN INDICATION
     Dosage: 1 DF, QID
     Route: 048
     Dates: start: 20140124, end: 20141017
  4. RANITIDINE [Concomitant]
     Active Substance: RANITIDINE\RANITIDINE HYDROCHLORIDE
     Indication: PRODUCT USED FOR UNKNOWN INDICATION
     Dosage: 1 DF, BID
     Route: 048
     Dates: start: 20130703, end: 20141016
  5. VITAMIN D3 [Concomitant]
     Active Substance: CHOLECALCIFEROL
     Indication: PRODUCT USED FOR UNKNOWN INDICATION
     Dosage: 5 DF, QD
     Route: 048
  6. ADDERALL [Concomitant]
     Active Substance: AMPHETAMINE ASPARTATE\AMPHETAMINE SULFATE\DEXTROAMPHETAMINE SACCHARATE\DEXTROAMPHETAMINE SULFATE
     Indication: FATIGUE
     Route: 065
  7. GABAPENTIN. [Concomitant]
     Active Substance: GABAPENTIN
     Indication: PRODUCT USED FOR UNKNOWN INDICATION
     Dosage: 2 DF, TID (CONCENTRATION 100 MG)
     Dates: start: 20140702
  8. DEXTROAMPHETAMINE [Concomitant]
     Active Substance: DEXTROAMPHETAMINE
     Dosage: 2 DF, BID (01 IN AM AND 01 AT NOON)
     Route: 065
     Dates: start: 20140909, end: 20141027
  9. SIMVASTATIN. [Concomitant]
     Active Substance: SIMVASTATIN
     Indication: PRODUCT USED FOR UNKNOWN INDICATION
     Dosage: 1 DF, QD
     Route: 048
     Dates: start: 20140124, end: 20140826
  10. TUMS [Concomitant]
     Active Substance: CALCIUM CARBONATE
     Indication: MINERAL SUPPLEMENTATION
     Dosage: 3 TO 4, QD
     Route: 048
  11. OXYCODONE AND ACETAMINOPHEN [Concomitant]
     Active Substance: ACETAMINOPHEN\OXYCODONE\OXYCODONE HYDROCHLORIDE
     Indication: PAIN
     Dosage: 1 DF, EVRY 06 HOURS
     Route: 048
     Dates: start: 20140806, end: 20140909
  12. DEXTROAMPHETAMINE [Concomitant]
     Active Substance: DEXTROAMPHETAMINE
     Indication: PRODUCT USED FOR UNKNOWN INDICATION
     Dosage: 2 DF, BID (01 IN AM AND 01 AT NOON)
     Route: 065
     Dates: start: 20140715
  13. DEXTROAMPHETAMINE [Concomitant]
     Active Substance: DEXTROAMPHETAMINE
     Dosage: 2 DF, BID (01 IN AM AND 01 AT NOON)
     Route: 065
     Dates: start: 20140812
  14. PRED FORTE [Concomitant]
     Active Substance: PREDNISOLONE ACETATE
     Indication: VISION BLURRED
     Dosage: 1 DF (DROP) INTO LEFT EYE, QID AS DIRECTED
     Route: 065
  15. DIAZEPAM. [Concomitant]
     Active Substance: DIAZEPAM
     Indication: ANXIETY
     Dosage: 1 DF, BID
     Route: 048
     Dates: start: 20140807, end: 20141215
  16. COLACE [Concomitant]
     Active Substance: DOCUSATE SODIUM
     Indication: PRODUCT USED FOR UNKNOWN INDICATION
     Dosage: 100 MG, PRN
     Route: 048
     Dates: end: 20150113
  17. VITAMIN D [Concomitant]
     Active Substance: CHOLECALCIFEROL
     Indication: PRODUCT USED FOR UNKNOWN INDICATION
     Dosage: UNK
     Route: 065
  18. PROAIR HFA [Concomitant]
     Active Substance: ALBUTEROL SULFATE
     Indication: WHEEZING
     Dosage: 2 DF (PUFFS), EVERY 04 HOURS, 108 (90 BASE) MCG/ACT I AERS
     Route: 055
     Dates: start: 20140728, end: 20150119
  19. NORCO [Concomitant]
     Active Substance: ACETAMINOPHEN\HYDROCODONE BITARTRATE
     Indication: PRODUCT USED FOR UNKNOWN INDICATION
     Dosage: 1 DF, TID
     Route: 048
  20. SYMBICORT [Concomitant]
     Active Substance: BUDESONIDE\FORMOTEROL FUMARATE DIHYDRATE
     Indication: PRODUCT USED FOR UNKNOWN INDICATION
     Dosage: 1 DF (1 PUFF), BID, 160-4.5 MCG/ACT IN AERO
     Route: 055
     Dates: start: 20140401
  21. MULTI VITAMIN [Concomitant]
     Active Substance: VITAMINS
     Indication: PRODUCT USED FOR UNKNOWN INDICATION
     Dosage: 1 DF, QD
     Route: 048
  22. GILENYA [Suspect]
     Active Substance: FINGOLIMOD HYDROCHLORIDE
     Indication: MULTIPLE SCLEROSIS
     Dosage: 0.5 MG, QD
     Dates: start: 20140729, end: 20140911
  23. GABAPENTIN. [Concomitant]
     Active Substance: GABAPENTIN
     Dosage: 300 MG, TID
     Route: 048
     Dates: start: 20140806, end: 20140910
  24. PRED FORTE [Concomitant]
     Active Substance: PREDNISOLONE ACETATE
     Indication: UVEITIS
  25. VENTOLIN [Concomitant]
     Active Substance: ALBUTEROL SULFATE
     Indication: PRODUCT USED FOR UNKNOWN INDICATION
     Dosage: UNK
     Route: 065
     Dates: start: 20120216
  26. SOLU-MEDROL [Concomitant]
     Active Substance: METHYLPREDNISOLONE SODIUM SUCCINATE
     Indication: PRODUCT USED FOR UNKNOWN INDICATION
     Dosage: 1000 MG, QMO
     Route: 042
     Dates: start: 20140604, end: 20141028

REACTIONS (10)
  - Visual acuity reduced [Unknown]
  - Hyperreflexia [Unknown]
  - Gait disturbance [Unknown]
  - Macular fibrosis [Unknown]
  - Clonus [Unknown]
  - Macular oedema [Recovered/Resolved]
  - Joint stiffness [Unknown]
  - Corneal opacity [Unknown]
  - Vitreous opacities [Unknown]
  - Optic atrophy [Unknown]
